FAERS Safety Report 8045364-5 (Version None)
Quarter: 2012Q1

REPORT INFORMATION
  Report Type: 
  Country: None (occurrence: None)
  Receive Date: 20120113
  Receipt Date: 20120106
  Transmission Date: 20120608
  Serious: Yes (Life-Threatening, Hospitalization, Disabling, Other)
  Sender: FDA-Public Use
  Company Number: US-BAYER-200829876NA

PATIENT
  Age: 39 Year
  Sex: Female

DRUGS (7)
  1. YASMIN [Suspect]
     Indication: CONTRACEPTION
     Dosage: UNK
     Dates: start: 20061115, end: 20070114
  2. FAMOTIDINE [Concomitant]
     Dosage: 40 MG, UNK
     Route: 048
     Dates: start: 20060828, end: 20061128
  3. YASMIN [Suspect]
     Indication: MENORRHAGIA
  4. YASMIN [Suspect]
     Indication: MENSTRUAL CYCLE MANAGEMENT
  5. LACTASE [Concomitant]
     Indication: COW'S MILK INTOLERANCE
     Dosage: 9000 U, PRN
     Dates: start: 20060828, end: 20061128
  6. CARISOPRODOL [Concomitant]
     Indication: PAIN
     Dosage: 350 MG, QID
     Route: 048
     Dates: start: 20060811, end: 20061111
  7. IBUPROFEN [Concomitant]
     Indication: PAIN
     Dosage: UNK, PRN
     Route: 048
     Dates: start: 20060801

REACTIONS (22)
  - SUPERIOR SAGITTAL SINUS THROMBOSIS [None]
  - ANXIETY [None]
  - ACTIVITIES OF DAILY LIVING IMPAIRED [None]
  - ANGER [None]
  - INJURY [None]
  - PAIN [None]
  - HEADACHE [None]
  - TINNITUS [None]
  - UNEVALUABLE EVENT [None]
  - NECK PAIN [None]
  - CEREBRAL VENOUS THROMBOSIS [None]
  - CEREBRAL THROMBOSIS [None]
  - EAR DISCOMFORT [None]
  - TRANSVERSE SINUS THROMBOSIS [None]
  - NAUSEA [None]
  - AMNESIA [None]
  - EMOTIONAL DISTRESS [None]
  - VASCULITIS CEREBRAL [None]
  - MUSCLE SPASMS [None]
  - DEHYDRATION [None]
  - DEPRESSION [None]
  - FEAR [None]
